FAERS Safety Report 5673778-7 (Version None)
Quarter: 2008Q1

REPORT INFORMATION
  Report Type: 
  Country: None (occurrence: None)
  Receive Date: 20080319
  Receipt Date: 20080310
  Transmission Date: 20080703
  Serious: Yes (Other)
  Sender: FDA-Public Use
  Company Number: TR-PFIZER INC-2008022293

PATIENT
  Age: 31 Year
  Sex: Female

DRUGS (2)
  1. PIROXICAM [Suspect]
     Indication: MYALGIA
  2. VALACYCLOVIR [Concomitant]

REACTIONS (1)
  - DRUG ERUPTION [None]
